FAERS Safety Report 15197900 (Version 1)
Quarter: 2018Q3

REPORT INFORMATION
  Report Type: Spontaneous
  Country: US (occurrence: US)
  Receive Date: 20180725
  Receipt Date: 20180725
  Transmission Date: 20181010
  Serious: No
  Sender: FDA-Public Use
  Company Number: US-ABBVIE-17P-163-2138565-00

PATIENT
  Age: 77 Year
  Sex: Female
  Weight: 99.88 kg

DRUGS (4)
  1. LEVOTHYROXINE. [Suspect]
     Active Substance: LEVOTHYROXINE
     Dosage: ONCE DAILY ON THE DAYS SHE IS AT HOME
     Route: 048
  2. LEVOTHYROXINE. [Suspect]
     Active Substance: LEVOTHYROXINE
     Indication: HYPOTHYROIDISM
     Dosage: WHEN SHE WAS HOME
     Route: 048
  3. LISINOPRIL. [Concomitant]
     Active Substance: LISINOPRIL
     Indication: PRODUCT USED FOR UNKNOWN INDICATION
     Dosage: EVERY NIGHT
  4. TIROSINT [Suspect]
     Active Substance: LEVOTHYROXINE SODIUM
     Indication: HYPOTHYROIDISM
     Dosage: ONCE DAILY ON THE DAYS SHE WAS OUT OF THE HOUSE
     Route: 048
     Dates: start: 201709

REACTIONS (13)
  - Exercise lack of [Unknown]
  - Diarrhoea [Unknown]
  - Fatigue [Unknown]
  - Heart rate increased [Unknown]
  - Wrong technique in product usage process [Unknown]
  - Hypertension [Unknown]
  - Osteoarthritis [Unknown]
  - Rheumatoid arthritis [Unknown]
  - Inappropriate schedule of drug administration [Unknown]
  - Arrhythmia [Recovered/Resolved]
  - Lethargy [Unknown]
  - Product quality issue [Unknown]
  - Bradycardia [Recovered/Resolved]

NARRATIVE: CASE EVENT DATE: 201709
